FAERS Safety Report 7444714-8 (Version None)
Quarter: 2011Q2

REPORT INFORMATION
  Report Type: 
  Country: None (occurrence: None)
  Receive Date: 20110429
  Receipt Date: 20110426
  Transmission Date: 20111010
  Serious: Yes (Hospitalization, Other)
  Sender: FDA-Public Use
  Company Number: IT-AMGEN-ITASP2011021787

PATIENT
  Age: 76 Year
  Sex: Female

DRUGS (4)
  1. NEULASTA [Suspect]
     Indication: CHEMOTHERAPY
     Dosage: 6 MG, UNK
     Route: 058
     Dates: start: 20110104, end: 20110104
  2. STILNOX                            /00914901/ [Concomitant]
     Dosage: 10 MG, UNK
     Route: 048
  3. CYCLOPHOSPHAMIDE [Concomitant]
     Dosage: 1350 MG, UNK
     Route: 042
     Dates: start: 20110103, end: 20110103
  4. VINCRISTINE [Concomitant]
     Dosage: 2 MG, UNK
     Route: 042
     Dates: start: 20110103, end: 20110103

REACTIONS (2)
  - BONE PAIN [None]
  - PLATELET COUNT INCREASED [None]
